FAERS Safety Report 6070581-3 (Version None)
Quarter: 2009Q1

REPORT INFORMATION
  Report Type: 
  Country: None (occurrence: None)
  Receive Date: 20090209
  Receipt Date: 20090202
  Transmission Date: 20090719
  Serious: Yes (Other)
  Sender: FDA-Public Use
  Company Number: ES-PFIZER INC-2009164882

PATIENT

DRUGS (4)
  1. VIAGRA [Suspect]
     Indication: ERECTILE DYSFUNCTION
     Dosage: 50 MG, AS NEEDED
     Route: 048
  2. COROPRES [Concomitant]
     Dosage: UNK
     Route: 048
  3. PREVENCOR [Concomitant]
     Dosage: UNK
     Route: 048
  4. DISGREN [Concomitant]
     Dosage: UNK
     Route: 048

REACTIONS (3)
  - BLINDNESS [None]
  - DEAFNESS [None]
  - HEADACHE [None]
